FAERS Safety Report 8554911-6 (Version None)
Quarter: 2012Q3

REPORT INFORMATION
  Report Type: 
  Country: None (occurrence: None)
  Receive Date: 20120731
  Receipt Date: 20120709
  Transmission Date: 20120928
  Serious: No
  Sender: FDA-Public Use
  Company Number: US-ASTRAZENECA-2012SE47004

PATIENT
  Age: 51 Year
  Sex: Female
  Weight: 61.2 kg

DRUGS (4)
  1. TYLENOL (CAPLET) [Concomitant]
  2. VITAMIN B-12 [Concomitant]
  3. MULTI-VITAMIN [Concomitant]
  4. NEXIUM [Suspect]
     Indication: GASTRITIS
     Route: 048

REACTIONS (4)
  - ERUCTATION [None]
  - ABDOMINAL DISCOMFORT [None]
  - OFF LABEL USE [None]
  - GASTROOESOPHAGEAL REFLUX DISEASE [None]
